FAERS Safety Report 17127144 (Version 2)
Quarter: 2019Q4

REPORT INFORMATION
  Report Type: Report from Study
  Country: US (occurrence: US)
  Receive Date: 20191209
  Receipt Date: 20191223
  Transmission Date: 20200122
  Serious: No
  Sender: FDA-Public Use
  Company Number: NVSC2019US062719

PATIENT
  Sex: Female
  Weight: 47.17 kg

DRUGS (3)
  1. ENTRESTO [Suspect]
     Active Substance: SACUBITRIL\VALSARTAN
     Dosage: 1 DF (24/26 MG), BID
     Route: 065
  2. CARVEDILOL. [Concomitant]
     Active Substance: CARVEDILOL
     Indication: PRODUCT USED FOR UNKNOWN INDICATION
     Dosage: 12.5 MG
     Route: 065
  3. ENTRESTO [Suspect]
     Active Substance: SACUBITRIL\VALSARTAN
     Indication: PRODUCT USED FOR UNKNOWN INDICATION
     Dosage: 1 DF (24/26 MG), BID
     Route: 048

REACTIONS (5)
  - Inappropriate schedule of product administration [Unknown]
  - Prescribed underdose [Unknown]
  - Drug intolerance [Unknown]
  - Blood pressure decreased [Unknown]
  - Wrong technique in product usage process [Unknown]
